FAERS Safety Report 8353889-8 (Version None)
Quarter: 2012Q2

REPORT INFORMATION
  Report Type: 
  Country: None (occurrence: None)
  Receive Date: 20120511
  Receipt Date: 20120210
  Transmission Date: 20120825
  Serious: No
  Sender: FDA-Public Use
  Company Number: US-GLAXOSMITHKLINE-A0965758A

PATIENT
  Age: 58 Year
  Sex: Female

DRUGS (2)
  1. FOOD [Suspect]
     Route: 048
  2. TYKERB [Suspect]
     Dosage: 1250MG PER DAY
     Dates: start: 20120114

REACTIONS (1)
  - DIARRHOEA [None]
